FAERS Safety Report 4917147-3 (Version None)
Quarter: 2006Q1

REPORT INFORMATION
  Report Type: 
  Country: None (occurrence: None)
  Receive Date: 20060214
  Receipt Date: 20060131
  Transmission Date: 20060701
  Serious: No
  Sender: FDA-Public Use
  Company Number: JP200601005200

PATIENT
  Sex: Male

DRUGS (2)
  1. ZYPREXA(OLANZAPINE UNKNOWN FORMULATIONO) UNKNOWN [Suspect]
  2. PERMAX [Suspect]

REACTIONS (1)
  - RED BLOOD CELL COUNT DECREASED [None]
